FAERS Safety Report 9280483 (Version 2)
Quarter: 2013Q4

REPORT INFORMATION
  Report Type: Spontaneous
  Country: US (occurrence: US)
  Receive Date: 20130509
  Receipt Date: 20131223
  Transmission Date: 20140711
  Serious: Yes (Hospitalization, Other)
  Sender: FDA-Public Use
  Company Number: US-BAYER-2013-057852

PATIENT
  Age: 34 Year
  Sex: Female
  Weight: 56.69 kg

DRUGS (3)
  1. YASMIN [Suspect]
     Indication: PREMENSTRUAL SYNDROME
     Dosage: UNK
     Dates: start: 2009, end: 2010
  2. YAZ [Suspect]
     Indication: PREMENSTRUAL SYNDROME
     Dosage: UNK
     Dates: start: 2009, end: 2010
  3. OCELLA [Suspect]
     Indication: PREMENSTRUAL SYNDROME
     Dosage: UNK
     Dates: start: 2009, end: 2010

REACTIONS (13)
  - Deep vein thrombosis [None]
  - Thrombosis [None]
  - Gastrointestinal inflammation [None]
  - Abdominal pain [None]
  - Injury [None]
  - Pain [None]
  - General physical health deterioration [None]
  - Anxiety [None]
  - Emotional distress [None]
  - Pain [None]
  - Asthenia [None]
  - Vomiting [None]
  - Diarrhoea [None]
